FAERS Safety Report 15175751 (Version 5)
Quarter: 2019Q2

REPORT INFORMATION
  Report Type: Spontaneous
  Country: US (occurrence: US)
  Receive Date: 20180720
  Receipt Date: 20190429
  Transmission Date: 20190711
  Serious: Yes (Hospitalization)
  Sender: FDA-Public Use
  Company Number: US-ACTELION-A-NJ2018-175816

PATIENT
  Age: 66 Year
  Sex: Female

DRUGS (10)
  1. ADCIRCA [Concomitant]
     Active Substance: TADALAFIL
     Dosage: 40 MG, QD
     Dates: start: 20120801
  2. PANTOPRAZOLE [Concomitant]
     Active Substance: PANTOPRAZOLE
  3. FLUTICASONE. [Concomitant]
     Active Substance: FLUTICASONE
  4. SYNTHROID [Concomitant]
     Active Substance: LEVOTHYROXINE SODIUM
  5. XARELTO [Concomitant]
     Active Substance: RIVAROXABAN
  6. OPSUMIT [Suspect]
     Active Substance: MACITENTAN
     Indication: PULMONARY ARTERIAL HYPERTENSION
     Dosage: 10 MG, QD
     Route: 048
     Dates: start: 20150612
  7. DOFETILIDE. [Concomitant]
     Active Substance: DOFETILIDE
  8. REMODULIN [Suspect]
     Active Substance: TREPROSTINIL
     Indication: PRODUCT USED FOR UNKNOWN INDICATION
     Route: 065
  9. AMMONIUM LACTATE. [Concomitant]
     Active Substance: AMMONIUM LACTATE
  10. MYCOPHENOLATE [Concomitant]
     Active Substance: MYCOPHENOLIC ACID

REACTIONS (6)
  - Diarrhoea [Not Recovered/Not Resolved]
  - Infusion site pain [Unknown]
  - Vomiting [Recovering/Resolving]
  - Product dose omission [Not Recovered/Not Resolved]
  - Nausea [Recovering/Resolving]
  - Incorrect dose administered [Not Recovered/Not Resolved]

NARRATIVE: CASE EVENT DATE: 201808
